FAERS Safety Report 20348874 (Version 1)
Quarter: 2022Q1

REPORT INFORMATION
  Report Type: Spontaneous
  Country: FR (occurrence: FR)
  Receive Date: 20220119
  Receipt Date: 20220119
  Transmission Date: 20220423
  Serious: Yes (Hospitalization, Other)
  Sender: FDA-Public Use
  Company Number: FR-AFSSAPS-NY20215559

PATIENT
  Age: 55 Year
  Sex: Male
  Weight: 113.6 kg

DRUGS (11)
  1. METFORMIN [Suspect]
     Active Substance: METFORMIN HYDROCHLORIDE
     Indication: Type 2 diabetes mellitus
     Dosage: 2 GRAM, DAILY
     Route: 048
  2. VAXIGRIPTETRA [Suspect]
     Active Substance: INFLUENZA VIRUS VACCINE QUADRIVALENT TYPE A+B
     Indication: Influenza immunisation
     Dosage: 1 DOSAGE FORM, UNK
     Route: 030
     Dates: start: 20211026, end: 20211026
  3. ZYMAD 200,000 IU, oral solution in ampoule [Concomitant]
     Indication: Vitamin supplementation
     Dosage: 1 DOSAGE FORM, 3 MONTHLY
     Route: 065
  4. TOUJEO [Concomitant]
     Active Substance: INSULIN GLARGINE
     Indication: Type 2 diabetes mellitus
     Dosage: 12 INTERNATIONAL UNIT, DAILY, IN THE LONG TERM
     Route: 058
  5. ESOMEPRAZOLE [Concomitant]
     Active Substance: ESOMEPRAZOLE
     Indication: Product used for unknown indication
     Dosage: 20 MILLIGRAM, DAILY
     Route: 048
  6. SYMBICORT TURBUHALER 400/12 micrograms/dose, powder for inhalation [Concomitant]
     Indication: Asthma
     Dosage: 2 DOSAGE FORM, DAILY
     Route: 055
  7. COVERAM 10mg/10mg tablets [Concomitant]
     Indication: Hypertension
     Dosage: 1 DOSAGE FORM, DAILY
     Route: 048
  8. ASPIRIN [Concomitant]
     Active Substance: ASPIRIN
     Indication: Cardiovascular event prophylaxis
     Dosage: 1 DOSAGE FORM, DAILY
     Route: 048
  9. FORXIGA 10 mg film-coated tablets [Concomitant]
     Indication: Type 2 diabetes mellitus
     Dosage: 1 DOSAGE FORM, DAILY
     Route: 048
  10. LIPTRUZET 10 mg/10 mg film-coated tablets [Concomitant]
     Indication: Dyslipidaemia
     Dosage: 1 DOSAGE FORM, DAILY
     Route: 048
  11. TEMERITDUO 5mg/12.5mg film-coated tablets [Concomitant]
     Indication: Hypertension
     Dosage: 1 DOSAGE FORM, DAILY, 5 MG/ 12.5 MG
     Route: 065

REACTIONS (1)
  - Guillain-Barre syndrome [Recovering/Resolving]

NARRATIVE: CASE EVENT DATE: 20211108
